FAERS Safety Report 9681794 (Version 1)
Quarter: 2013Q4

REPORT INFORMATION
  Report Type: Spontaneous
  Country: AT (occurrence: AT)
  Receive Date: 20131111
  Receipt Date: 20131111
  Transmission Date: 20140711
  Serious: Yes (Other)
  Sender: FDA-Public Use
  Company Number: AT-MALLINCKRODT-T201304750

PATIENT
  Age: 58 Year
  Sex: Female

DRUGS (1)
  1. OPTIRAY [Suspect]
     Indication: VENOGRAM
     Dosage: 50 ML, SINGLE, 50 ML PRE-FILLED SYRINGE; NO INJECTOR
     Route: 042
     Dates: start: 20131022, end: 20131022

REACTIONS (3)
  - Blood pressure increased [Recovered/Resolved]
  - Heart rate increased [Recovered/Resolved]
  - Nausea [Recovered/Resolved]
